FAERS Safety Report 6099764-3 (Version None)
Quarter: 2009Q1

REPORT INFORMATION
  Report Type: 
  Country: None (occurrence: None)
  Receive Date: 20090226
  Receipt Date: 20090211
  Transmission Date: 20090719
  Serious: Yes (Other)
  Sender: FDA-Public Use
  Company Number: 2009S1002431

PATIENT
  Age: 85 Year
  Sex: Female
  Weight: 65.77 kg

DRUGS (9)
  1. MELOXICAM [Suspect]
     Indication: PAIN
     Dosage: 7.5 MG;
     Dates: start: 20090109, end: 20090110
  2. MELOXICAM [Suspect]
     Indication: PAIN
     Dosage: 7.5 MG;
     Dates: start: 20090114, end: 20090117
  3. FUROSEMIDE [Concomitant]
  4. QUININE [Concomitant]
  5. ZOPICLONE [Concomitant]
  6. MULTI-VITAMINS [Concomitant]
  7. ASPIRIN [Concomitant]
  8. CODEINE [Concomitant]
  9. IBUPROFEN [Concomitant]

REACTIONS (4)
  - ERYTHEMA [None]
  - EYE PRURITUS [None]
  - PRURITUS [None]
  - SWELLING FACE [None]
